FAERS Safety Report 6193869-4 (Version None)
Quarter: 2009Q2

REPORT INFORMATION
  Report Type: 
  Country: None (occurrence: None)
  Receive Date: 20090518
  Receipt Date: 20090508
  Transmission Date: 20091009
  Serious: Yes (Hospitalization)
  Sender: FDA-Public Use
  Company Number: AU-PFIZER INC-2009194032

PATIENT
  Age: 35 Year

DRUGS (2)
  1. CELEBREX [Suspect]
     Indication: ANALGESIA
     Dosage: 200 MG TWICE DAILY TO THREE TIMES DAILY
     Route: 048
     Dates: start: 20090401, end: 20090402
  2. DIHYDROERGOTAMINE MESYLATE [Suspect]
     Indication: MIGRAINE

REACTIONS (4)
  - ACUTE HEPATIC FAILURE [None]
  - HEPATIC ENCEPHALOPATHY [None]
  - HEPATITIS B [None]
  - RENAL FAILURE ACUTE [None]
